FAERS Safety Report 9550485 (Version 1)
Quarter: 2013Q3

REPORT INFORMATION
  Report Type: Spontaneous
  Country: US (occurrence: US)
  Receive Date: 20130924
  Receipt Date: 20130924
  Transmission Date: 20140515
  Serious: No
  Sender: FDA-Public Use
  Company Number: US-SANOFI-AVENTIS-2013SA082226

PATIENT
  Age: 43 Year
  Sex: Female
  Weight: 88 kg

DRUGS (7)
  1. AUBAGIO [Suspect]
     Indication: MULTIPLE SCLEROSIS
     Route: 048
     Dates: start: 201303
  2. BACLOFEN [Concomitant]
     Indication: MUSCLE SPASMS
     Dates: start: 20090922
  3. BACLOFEN [Concomitant]
     Indication: MUSCLE SPASTICITY
     Dates: start: 20090922
  4. FLUOXETINE [Concomitant]
     Indication: MULTIPLE SCLEROSIS
     Dates: start: 20090910
  5. GABAPENTIN [Concomitant]
     Indication: NEURALGIA
     Dates: start: 20090910
  6. GABAPENTIN [Concomitant]
     Indication: MUSCLE SPASTICITY
     Dates: start: 20090910
  7. ROPINIROLE [Concomitant]
     Indication: MUSCLE SPASTICITY
     Dates: start: 2012

REACTIONS (4)
  - Feeling abnormal [Not Recovered/Not Resolved]
  - Liver disorder [Unknown]
  - Alopecia [Unknown]
  - Paraesthesia [Unknown]
